FAERS Safety Report 18745538 (Version 2)
Quarter: 2021Q3

REPORT INFORMATION
  Report Type: Report from Study
  Country: AU (occurrence: AU)
  Receive Date: 20210115
  Receipt Date: 20210716
  Transmission Date: 20211014
  Serious: Yes (Other)
  Sender: FDA-Public Use
  Company Number: AU-REGENERON PHARMACEUTICALS, INC.-2020-88825

PATIENT

DRUGS (3)
  1. EYLEA [Suspect]
     Active Substance: AFLIBERCEPT
     Dosage: HAVING INJECTIONS EVERY FORTNIGHT
     Route: 031
  2. EYLEA [Suspect]
     Active Substance: AFLIBERCEPT
     Indication: DIABETIC RETINAL OEDEMA
     Dosage: BOTH EYES, TOTAL EYLEA DOSE WAS NOT REPORTED
     Route: 031
     Dates: start: 20200810
  3. EYLEA [Suspect]
     Active Substance: AFLIBERCEPT
     Dosage: 1 DF, ONCE (BOTH EYES)
     Route: 031
     Dates: start: 20210108, end: 20210108

REACTIONS (11)
  - Visual impairment [Unknown]
  - Procedural pain [Unknown]
  - Diabetes mellitus inadequate control [Unknown]
  - Injection site haemorrhage [Unknown]
  - Hypertension [Recovering/Resolving]
  - Photophobia [Not Recovered/Not Resolved]
  - Product prescribing issue [Unknown]
  - Visual impairment [Recovered/Resolved]
  - Post procedural swelling [Unknown]
  - Musculoskeletal disorder [Unknown]
  - Eye laser surgery [Not Recovered/Not Resolved]

NARRATIVE: CASE EVENT DATE: 202008
